FAERS Safety Report 16534757 (Version 1)
Quarter: 2019Q3

REPORT INFORMATION
  Report Type: Spontaneous
  Country: US (occurrence: US)
  Receive Date: 20190705
  Receipt Date: 20190705
  Transmission Date: 20191004
  Serious: Yes (Hospitalization, Other)
  Sender: FDA-Public Use
  Company Number: US-APOTEX-2019AP017562

PATIENT
  Age: 25 Year
  Sex: Male

DRUGS (3)
  1. FLUOXETINE [Concomitant]
     Active Substance: FLUOXETINE HYDROCHLORIDE
     Indication: MENTAL DISORDER
     Dosage: 20 MG, QD
     Route: 065
  2. MIRTAZAPINE. [Suspect]
     Active Substance: MIRTAZAPINE
     Indication: MENTAL DISORDER
     Dosage: 30 MG, Q.H.S.
     Route: 065
  3. FENTANYL. [Suspect]
     Active Substance: FENTANYL
     Indication: SPINAL COMPRESSION FRACTURE
     Dosage: 100 ?G, Q.H.
     Route: 042

REACTIONS (1)
  - Serotonin syndrome [Recovered/Resolved]
